FAERS Safety Report 6580306-0 (Version None)
Quarter: 2010Q1

REPORT INFORMATION
  Report Type: 
  Country: None (occurrence: None)
  Receive Date: 20100212
  Receipt Date: 20091117
  Transmission Date: 20100710
  Serious: No
  Sender: FDA-Public Use
  Company Number: US-ALLERGAN-0915901US

PATIENT
  Age: 50 Year
  Sex: Female

DRUGS (1)
  1. COMBIGAN [Suspect]
     Indication: BORDERLINE GLAUCOMA
     Dosage: 1 GTT, BID
     Route: 047
     Dates: start: 20091101

REACTIONS (3)
  - EYE PAIN [None]
  - MUSCULAR WEAKNESS [None]
  - PALPITATIONS [None]
